FAERS Safety Report 9650180 (Version 1)
Quarter: 2013Q4

REPORT INFORMATION
  Report Type: Spontaneous
  Country: US (occurrence: US)
  Receive Date: 20131028
  Receipt Date: 20131028
  Transmission Date: 20140711
  Serious: Yes (Other)
  Sender: FDA-Public Use
  Company Number: US-NAPPMUNDI-USA-2013-0097699

PATIENT
  Age: 26 Year
  Sex: Male

DRUGS (5)
  1. OXYCODONE HYDROCHLORIDE (SIMILAR TO NDA 22-272) [Suspect]
     Indication: DRUG ABUSE
  2. MARIJUANA [Suspect]
     Indication: DRUG ABUSE
  3. HEROIN [Suspect]
     Indication: DRUG ABUSE
  4. COCAINE [Suspect]
  5. BENZODIAZEPINE DERIVATIVES [Suspect]
     Indication: DRUG ABUSE

REACTIONS (1)
  - Substance abuse [Unknown]
